FAERS Safety Report 8509355-X (Version None)
Quarter: 2012Q3

REPORT INFORMATION
  Report Type: 
  Country: None (occurrence: None)
  Receive Date: 20120713
  Receipt Date: 20101028
  Transmission Date: 20120928
  Serious: Yes (Other)
  Sender: FDA-Public Use
  Company Number: ZA-ROCHE-1087263

PATIENT
  Age: 34 Year
  Sex: Male

DRUGS (4)
  1. PROGRAF [Concomitant]
  2. CELLCEPT [Suspect]
     Indication: RENAL TRANSPLANT
     Route: 065
  3. PREDNISONE [Concomitant]
  4. VALCYTE [Suspect]
     Indication: RENAL TRANSPLANT
     Route: 048

REACTIONS (4)
  - ORAL PAIN [None]
  - ORAL INFECTION [None]
  - CONSTIPATION [None]
  - WEIGHT DECREASED [None]
